FAERS Safety Report 19024569 (Version 1)
Quarter: 2021Q1

REPORT INFORMATION
  Report Type: Spontaneous
  Country: FR (occurrence: FR)
  Receive Date: 20210317
  Receipt Date: 20210317
  Transmission Date: 20210420
  Serious: Yes (Hospitalization)
  Sender: FDA-Public Use
  Company Number: FR-BRISTOL-MYERS SQUIBB COMPANY-BMS-2021-024341

PATIENT
  Age: 60 Year
  Sex: Female
  Weight: 60 kg

DRUGS (4)
  1. AUGMENTIN [Interacting]
     Active Substance: AMOXICILLIN\CLAVULANATE POTASSIUM
     Indication: BACTERAEMIA
     Dosage: 3 GRAM, 1 DAY
     Route: 048
     Dates: start: 20210210, end: 20210213
  2. TAZOCILLINE [Interacting]
     Active Substance: PIPERACILLIN SODIUM\TAZOBACTAM SODIUM
     Indication: PNEUMONIA
     Dosage: 12 GRAM, 1 DAY
     Route: 042
     Dates: start: 20210213, end: 20210223
  3. COUMADINE [Suspect]
     Active Substance: WARFARIN SODIUM
     Indication: CARDIAC VALVE PROSTHESIS USER
     Dosage: 1.5 MILLIGRAM, 1 DAY
     Route: 048
     Dates: start: 1998, end: 20210214
  4. ROVAMYCINE [SPIRAMYCIN] [Interacting]
     Active Substance: SPIRAMYCIN
     Indication: PNEUMONIA
     Dosage: 4.5 MEGA?INTERNATIONAL UNIT, QD
     Route: 048
     Dates: start: 20210213, end: 20210223

REACTIONS (2)
  - International normalised ratio increased [Recovered/Resolved]
  - Drug interaction [Recovered/Resolved]

NARRATIVE: CASE EVENT DATE: 20210213
